FAERS Safety Report 17599620 (Version 1)
Quarter: 2020Q1

REPORT INFORMATION
  Report Type: Report from Study
  Country: CO (occurrence: CO)
  Receive Date: 20200330
  Receipt Date: 20200330
  Transmission Date: 20200409
  Serious: Yes (Other)
  Sender: FDA-Public Use
  Company Number: CO-ROCHE-2524802

PATIENT
  Sex: Female

DRUGS (2)
  1. CELLCEPT [Suspect]
     Active Substance: MYCOPHENOLATE MOFETIL\MYCOPHENOLATE MOFETIL HYDROCHLORIDE
     Indication: PRODUCT USED FOR UNKNOWN INDICATION
     Dosage: 4 TABLETS OF 500 MG EVERY DAY
     Route: 048
  2. CYCLOSPORINE. [Concomitant]
     Active Substance: CYCLOSPORINE

REACTIONS (8)
  - Malaise [Unknown]
  - Blood cholesterol increased [Unknown]
  - Proteinuria [Unknown]
  - Poisoning [Unknown]
  - Blood creatinine increased [Recovering/Resolving]
  - Gastritis [Unknown]
  - Vomiting [Unknown]
  - Haematemesis [Unknown]
